FAERS Safety Report 6129859-7 (Version None)
Quarter: 2009Q1

REPORT INFORMATION
  Report Type: 
  Country: None (occurrence: None)
  Receive Date: 20090323
  Receipt Date: 20090323
  Transmission Date: 20090719
  Serious: Yes (Hospitalization)
  Sender: FDA-Public Use
  Company Number: None

PATIENT
  Age: 43 Year
  Sex: Female
  Weight: 77 kg

DRUGS (4)
  1. CHANTIX [Suspect]
     Indication: SMOKING CESSATION THERAPY
     Dosage: 0.5 MG DAILY PO
     Route: 048
     Dates: start: 20090224, end: 20090225
  2. FLUTICASONE/SALMETEROL [Concomitant]
  3. ZOLPIDEM [Concomitant]
  4. ALBUTEROL [Concomitant]

REACTIONS (2)
  - OEDEMA [None]
  - RASH PRURITIC [None]
